FAERS Safety Report 23352249 (Version 1)
Quarter: 2023Q4

REPORT INFORMATION
  Report Type: Report from Study
  Country: DE (occurrence: DE)
  Receive Date: 20231229
  Receipt Date: 20231229
  Transmission Date: 20240110
  Serious: Yes (Hospitalization)
  Sender: FDA-Public Use
  Company Number: DE-JNJFOC-20231251681

PATIENT
  Age: 39 Year
  Sex: Male
  Weight: 117 kg

DRUGS (2)
  1. TREMFYA [Suspect]
     Active Substance: GUSELKUMAB
     Indication: Psoriatic arthropathy
     Dosage: WEEK 0
     Route: 065
     Dates: start: 20230828
  2. TREMFYA [Suspect]
     Active Substance: GUSELKUMAB
     Dosage: WEEK 4
     Route: 065
     Dates: start: 20230927

REACTIONS (1)
  - Diverticular perforation [Recovered/Resolved]

NARRATIVE: CASE EVENT DATE: 20231009
